FAERS Safety Report 16304924 (Version 4)
Quarter: 2019Q3

REPORT INFORMATION
  Report Type: Spontaneous
  Country: US (occurrence: US)
  Receive Date: 20190513
  Receipt Date: 20190909
  Transmission Date: 20191004
  Serious: Yes (Hospitalization, Disabling, Other)
  Sender: FDA-Public Use
  Company Number: US-PFIZER INC-2019199554

PATIENT
  Age: 57 Year
  Sex: Male
  Weight: 107 kg

DRUGS (9)
  1. GABAPENTIN. [Concomitant]
     Active Substance: GABAPENTIN
     Indication: OSTEOARTHRITIS
     Dosage: 600 MG, THREE TIMES DAILY
     Route: 048
  2. GABAPENTIN. [Concomitant]
     Active Substance: GABAPENTIN
     Indication: POST LAMINECTOMY SYNDROME
  3. CELEBREX [Suspect]
     Active Substance: CELECOXIB
     Indication: OSTEONECROSIS
     Dosage: 400 MG, 1X/DAY
     Route: 048
     Dates: start: 201302
  4. CELEBREX [Suspect]
     Active Substance: CELECOXIB
     Indication: OSTEOARTHRITIS
     Dosage: UNK
     Dates: start: 2005
  5. LYRICA [Concomitant]
     Active Substance: PREGABALIN
     Indication: POST LAMINECTOMY SYNDROME
  6. CELEBREX [Suspect]
     Active Substance: CELECOXIB
     Indication: POST LAMINECTOMY SYNDROME
  7. LYRICA [Concomitant]
     Active Substance: PREGABALIN
     Indication: OSTEONECROSIS
  8. LYRICA [Concomitant]
     Active Substance: PREGABALIN
     Indication: OSTEOARTHRITIS
     Dosage: 300 MG, DAILY
     Route: 048
     Dates: end: 201904
  9. GABAPENTIN. [Concomitant]
     Active Substance: GABAPENTIN
     Indication: OSTEONECROSIS

REACTIONS (7)
  - Intentional dose omission [Unknown]
  - Thrombosis [Recovered/Resolved]
  - Gait inability [Unknown]
  - Arthralgia [Unknown]
  - Deep vein thrombosis [Recovered/Resolved]
  - Therapeutic product effect incomplete [Unknown]
  - Off label use [Unknown]

NARRATIVE: CASE EVENT DATE: 201302
